FAERS Safety Report 6551846-5 (Version None)
Quarter: 2010Q1

REPORT INFORMATION
  Report Type: 
  Country: None (occurrence: None)
  Receive Date: 20100126
  Receipt Date: 20100119
  Transmission Date: 20100710
  Serious: Yes (Other)
  Sender: FDA-Public Use
  Company Number: US-PFIZER INC-2010008485

PATIENT
  Sex: Female
  Weight: 54.422 kg

DRUGS (3)
  1. NEURONTIN [Suspect]
     Indication: NEUROPATHY PERIPHERAL
     Dosage: 300 MG AT BEDTIME AND 100 MG TWICE DAILY
  2. NEURONTIN [Suspect]
     Indication: INTERVERTEBRAL DISC DEGENERATION
  3. CELEBREX [Concomitant]
     Dosage: UNK

REACTIONS (11)
  - BREAST PAIN [None]
  - DRUG INEFFECTIVE [None]
  - IRRITABILITY [None]
  - MOOD SWINGS [None]
  - MOUTH ULCERATION [None]
  - NECK PAIN [None]
  - TENDONITIS [None]
  - THINKING ABNORMAL [None]
  - TOOTH FRACTURE [None]
  - VISION BLURRED [None]
  - VISUAL ACUITY REDUCED [None]
